FAERS Safety Report 13143960 (Version 3)
Quarter: 2017Q1

REPORT INFORMATION
  Report Type: Spontaneous
  Country: JP (occurrence: JP)
  Receive Date: 20170124
  Receipt Date: 20170222
  Transmission Date: 20170428
  Serious: Yes (Other)
  Sender: FDA-Public Use
  Company Number: JP-ROCHE-1883015

PATIENT
  Age: 53 Day
  Sex: Female

DRUGS (2)
  1. TARIVID [Concomitant]
     Active Substance: OFLOXACIN
     Indication: PRODUCT USED FOR UNKNOWN INDICATION
     Route: 065
     Dates: start: 20160715, end: 20160715
  2. LUCENTIS [Suspect]
     Active Substance: RANIBIZUMAB
     Indication: RETINOPATHY OF PREMATURITY
     Route: 031
     Dates: start: 20160715, end: 20160715

REACTIONS (2)
  - Product use issue [Unknown]
  - Vitreous adhesions [Recovering/Resolving]

NARRATIVE: CASE EVENT DATE: 20160909
